FAERS Safety Report 25445708 (Version 1)
Quarter: 2025Q2

REPORT INFORMATION
  Report Type: Report from Study
  Country: US (occurrence: US)
  Receive Date: 20250617
  Receipt Date: 20250617
  Transmission Date: 20250716
  Serious: Yes (Other)
  Sender: ABBVIE
  Company Number: US-ABBVIE-6289277

PATIENT
  Age: 67 Year
  Sex: Female

DRUGS (2)
  1. HUMIRA [Suspect]
     Active Substance: ADALIMUMAB
     Indication: Crohn^s disease
     Route: 058
     Dates: start: 202411
  2. MESALAMINE [Concomitant]
     Active Substance: MESALAMINE
     Indication: Product used for unknown indication

REACTIONS (6)
  - Loss of consciousness [Unknown]
  - Crohn^s disease [Unknown]
  - Flatulence [Unknown]
  - Gastrointestinal oedema [Unknown]
  - Anal incontinence [Unknown]
  - Asthenia [Unknown]

NARRATIVE: CASE EVENT DATE: 20250511
